FAERS Safety Report 20659861 (Version 1)
Quarter: 2022Q1

REPORT INFORMATION
  Report Type: Spontaneous
  Country: US (occurrence: US)
  Receive Date: 20220331
  Receipt Date: 20220331
  Transmission Date: 20220423
  Serious: Yes (Other)
  Sender: FDA-Public Use
  Company Number: US-FRESENIUS KABI-FK202203539

PATIENT
  Age: 73 Year
  Sex: Male
  Weight: 61 kg

DRUGS (3)
  1. PROTAMINE SULFATE [Suspect]
     Active Substance: PROTAMINE SULFATE
     Indication: Procoagulant therapy
     Route: 042
     Dates: start: 20220217, end: 20220217
  2. PROTAMINE SULFATE [Suspect]
     Active Substance: PROTAMINE SULFATE
     Route: 042
     Dates: start: 20220217, end: 20220217
  3. HEPARIN [Concomitant]
     Active Substance: HEPARIN SODIUM
     Indication: Anticoagulant therapy
     Route: 065
     Dates: start: 20220217, end: 20220217

REACTIONS (5)
  - Coagulopathy [Recovered/Resolved]
  - Blood loss anaemia [Recovered/Resolved]
  - Neurological symptom [Recovered/Resolved]
  - Drug ineffective [Unknown]
  - Subdural haematoma [Unknown]

NARRATIVE: CASE EVENT DATE: 20220217
